FAERS Safety Report 5324768-5 (Version None)
Quarter: 2007Q2

REPORT INFORMATION
  Report Type: 
  Country: None (occurrence: None)
  Receive Date: 20070515
  Receipt Date: 20070508
  Transmission Date: 20071010
  Serious: Yes (Hospitalization)
  Sender: FDA-Public Use
  Company Number: PHBS2007JP05550

PATIENT
  Age: 51 Year
  Sex: Female

DRUGS (13)
  1. AREDIA [Suspect]
     Indication: METASTASES TO BONE
     Dosage: 90 MG/MONTH
     Route: 042
     Dates: start: 20040901, end: 20060501
  2. PREDONINE [Suspect]
     Dosage: 5 MG, UNK
     Route: 048
  3. PREDONINE [Suspect]
     Dosage: 5 MG/DAY
     Route: 048
  4. BONALON [Suspect]
     Dosage: 5 MG/DAY
     Route: 048
  5. ZOMETA [Suspect]
     Indication: METASTASES TO BONE
     Dosage: 4 MG/MONTH
     Route: 042
     Dates: start: 20060501, end: 20070301
  6. COMELIAN [Concomitant]
     Dosage: 200 MG, UNK
  7. MUCOSTA [Concomitant]
  8. SALAZOPYRIN [Concomitant]
     Dosage: 500 MG, UNK
  9. IMURAN [Concomitant]
  10. MAGLAX [Concomitant]
     Dosage: 1500 MG, UNK
  11. DUROTEP JANSSEN [Concomitant]
     Dosage: 2.5 MG, UNK
  12. PARIET [Concomitant]
  13. PAXIL [Concomitant]
     Dosage: 10 MG, UNK

REACTIONS (10)
  - DENTAL FISTULA [None]
  - HAEMATOCRIT DECREASED [None]
  - HAEMOGLOBIN DECREASED [None]
  - OEDEMA MOUTH [None]
  - OSTEOMYELITIS [None]
  - PAIN [None]
  - PLATELET COUNT INCREASED [None]
  - PURULENCE [None]
  - RED BLOOD CELL COUNT DECREASED [None]
  - TOOTH EXTRACTION [None]
